FAERS Safety Report 13181008 (Version 1)
Quarter: 2017Q1

REPORT INFORMATION
  Report Type: Spontaneous
  Country: US (occurrence: US)
  Receive Date: 20170202
  Receipt Date: 20170202
  Transmission Date: 20170428
  Serious: No
  Sender: FDA-Public Use
  Company Number: US-SMITH AND NEPHEW, INC-2016SMT00272

PATIENT
  Age: 71 Year
  Sex: Female
  Weight: 92.52 kg

DRUGS (11)
  1. LEVOTHYROXINE. [Concomitant]
     Active Substance: LEVOTHYROXINE
     Dosage: 100 MG, 1X/DAY
     Dates: start: 2014
  2. LOSARTAN. [Concomitant]
     Active Substance: LOSARTAN
     Dosage: 50 MG, 1X/DAY
     Dates: start: 2013
  3. CARVEDILOL. [Concomitant]
     Active Substance: CARVEDILOL
     Dosage: 25 MG, 1X/DAY
  4. REGRANEX [Suspect]
     Active Substance: BECAPLERMIN
     Indication: SKIN ULCER
     Dosage: UNK, 1X/DAY
     Route: 061
     Dates: start: 20160316
  5. FENOFIBRATE. [Concomitant]
     Active Substance: FENOFIBRATE
     Dosage: 134 MG, 1X/DAY
     Dates: start: 2015
  6. GABAPENTIN. [Concomitant]
     Active Substance: GABAPENTIN
     Dosage: 300 MG, 2X/DAY
  7. REGRANEX [Suspect]
     Active Substance: BECAPLERMIN
     Dosage: 1 DOSAGE UNITS, UNK
     Route: 061
     Dates: start: 20160316
  8. GLIPIZIDE. [Concomitant]
     Active Substance: GLIPIZIDE
     Dosage: 10 MG, 2X/DAY
     Dates: start: 2013
  9. JANUVIA [Concomitant]
     Active Substance: SITAGLIPTIN PHOSPHATE
     Dosage: 50 MG, 1X/DAY
     Dates: start: 201603
  10. SPIRONOLACTONE. [Concomitant]
     Active Substance: SPIRONOLACTONE
     Dosage: 25 MG, 1X/DAY
     Dates: start: 2014
  11. ATORVASTATIN [Concomitant]
     Active Substance: ATORVASTATIN
     Dosage: 40 MG, 1X/DAY
     Dates: start: 2013

REACTIONS (2)
  - Wound complication [Unknown]
  - Wound secretion [Recovered/Resolved]

NARRATIVE: CASE EVENT DATE: 201603
